FAERS Safety Report 5282170-9 (Version None)
Quarter: 2007Q1

REPORT INFORMATION
  Report Type: 
  Country: None (occurrence: None)
  Receive Date: 20070330
  Receipt Date: 20070320
  Transmission Date: 20070707
  Serious: Yes (Death)
  Sender: FDA-Public Use
  Company Number: KR-PFIZER INC-2007010496

PATIENT
  Sex: Female
  Weight: 48 kg

DRUGS (3)
  1. SU-011,248 [Suspect]
     Indication: GASTROINTESTINAL STROMAL TUMOUR
     Route: 048
     Dates: start: 20061013, end: 20070124
  2. ENZYME PREPARATIONS [Concomitant]
     Route: 048
     Dates: start: 20070111, end: 20070124
  3. AMLODIPINE [Concomitant]
     Dosage: DAILY DOSE:5MG
     Route: 048

REACTIONS (1)
  - SEPSIS [None]
